FAERS Safety Report 23577387 (Version 15)
Quarter: 2024Q3

REPORT INFORMATION
  Report Type: Spontaneous
  Country: CA (occurrence: CA)
  Receive Date: 20240228
  Receipt Date: 20240722
  Transmission Date: 20241017
  Serious: Yes (Hospitalization, Other)
  Sender: PFIZER
  Company Number: CA-PFIZER INC-PV202300177081

PATIENT
  Age: 53 Year
  Sex: Male
  Weight: 96.2 kg

DRUGS (23)
  1. ZIRABEV [Suspect]
     Active Substance: BEVACIZUMAB-BVZR
     Indication: Colon cancer
     Dosage: 475 MG, EVERY 2 WEEKS
     Route: 042
     Dates: start: 20231024
  2. ZIRABEV [Suspect]
     Active Substance: BEVACIZUMAB-BVZR
     Dosage: 475 MG, EVERY 2 WEEKS
     Route: 042
     Dates: start: 20231024
  3. ZIRABEV [Suspect]
     Active Substance: BEVACIZUMAB-BVZR
     Dosage: 475 MG, EVERY 2 WEEKS
     Route: 042
     Dates: start: 20231107
  4. ZIRABEV [Suspect]
     Active Substance: BEVACIZUMAB-BVZR
     Dosage: 475 MG, EVERY 2 WEEKS
     Route: 042
     Dates: start: 20231107
  5. ZIRABEV [Suspect]
     Active Substance: BEVACIZUMAB-BVZR
     Dosage: 475 MG, EVERY 2 WEEKS
     Route: 042
     Dates: start: 20231121
  6. ZIRABEV [Suspect]
     Active Substance: BEVACIZUMAB-BVZR
     Dosage: 475 MG, EVERY 2 WEEKS
     Route: 042
     Dates: start: 20231121
  7. ZIRABEV [Suspect]
     Active Substance: BEVACIZUMAB-BVZR
     Dosage: 475 MG, EVERY 2 WEEKS
     Route: 042
     Dates: start: 20231205
  8. ZIRABEV [Suspect]
     Active Substance: BEVACIZUMAB-BVZR
     Dosage: 475 MG, EVERY 2 WEEKS
     Route: 042
     Dates: start: 20240103
  9. ZIRABEV [Suspect]
     Active Substance: BEVACIZUMAB-BVZR
     Dosage: 475 MG, EVERY 2 WEEKS
     Route: 042
     Dates: start: 20240103
  10. ZIRABEV [Suspect]
     Active Substance: BEVACIZUMAB-BVZR
     Dosage: 475 MG, EVERY 2 WEEKS
     Route: 042
     Dates: start: 20240123
  11. ZIRABEV [Suspect]
     Active Substance: BEVACIZUMAB-BVZR
     Dosage: 475 MG, EVERY 2 WEEKS
     Route: 042
     Dates: start: 20240123
  12. ZIRABEV [Suspect]
     Active Substance: BEVACIZUMAB-BVZR
     Dosage: 475 MG, EVERY 2 WEEKS
     Route: 042
     Dates: start: 20240206
  13. ZIRABEV [Suspect]
     Active Substance: BEVACIZUMAB-BVZR
     Dosage: 475 MG, EVERY 2 WEEKS
     Route: 042
     Dates: start: 20240206
  14. ZIRABEV [Suspect]
     Active Substance: BEVACIZUMAB-BVZR
     Dosage: 475 MG, EVERY 2 WEEKS
     Route: 042
     Dates: start: 20240313
  15. ZIRABEV [Suspect]
     Active Substance: BEVACIZUMAB-BVZR
     Dosage: 475 MG, EVERY 2 WEEKS
     Route: 042
     Dates: start: 20240313
  16. ZIRABEV [Suspect]
     Active Substance: BEVACIZUMAB-BVZR
     Dosage: 475 MG, EVERY 2 WEEKS
     Route: 042
     Dates: start: 20240328
  17. ZIRABEV [Suspect]
     Active Substance: BEVACIZUMAB-BVZR
     Dosage: 475 MG
     Route: 042
     Dates: start: 20240423
  18. ZIRABEV [Suspect]
     Active Substance: BEVACIZUMAB-BVZR
     Dosage: 475 MG, EVERY 2 WEEKS
     Route: 042
     Dates: start: 20240514
  19. ZIRABEV [Suspect]
     Active Substance: BEVACIZUMAB-BVZR
     Dosage: 475 MG, EVERY 2 WEEKS
     Route: 042
     Dates: start: 20240514
  20. ZIRABEV [Suspect]
     Active Substance: BEVACIZUMAB-BVZR
     Dosage: 475 MG, EVERY 2 WEEKS
     Route: 042
     Dates: start: 20240523
  21. ZIRABEV [Suspect]
     Active Substance: BEVACIZUMAB-BVZR
     Dosage: 475 MG, EVERY 2 WEEKS
     Route: 042
     Dates: start: 20240523
  22. ZIRABEV [Suspect]
     Active Substance: BEVACIZUMAB-BVZR
     Dosage: 475 MG, EVERY 2 WEEKS
     Route: 042
     Dates: start: 20240702
  23. ZIRABEV [Suspect]
     Active Substance: BEVACIZUMAB-BVZR
     Dosage: 475 MG, EVERY 2 WEEKS
     Route: 042
     Dates: start: 20240702

REACTIONS (14)
  - Pain [Unknown]
  - Renal disorder [Unknown]
  - Blood pressure diastolic decreased [Recovered/Resolved]
  - Escherichia urinary tract infection [Unknown]
  - Fatigue [Unknown]
  - Nausea [Not Recovered/Not Resolved]
  - Cough [Recovered/Resolved]
  - Blood urine present [Unknown]
  - Dizziness [Unknown]
  - Headache [Recovered/Resolved]
  - Asthenia [Not Recovered/Not Resolved]
  - Flushing [Unknown]
  - Intentional product misuse [Unknown]
  - Product dose omission issue [Unknown]

NARRATIVE: CASE EVENT DATE: 20231024
